FAERS Safety Report 9649441 (Version 2)
Quarter: 2013Q4

REPORT INFORMATION
  Report Type: Report from Study
  Country: JP (occurrence: JP)
  Receive Date: 20131028
  Receipt Date: 20131220
  Transmission Date: 20140711
  Serious: Yes (Hospitalization)
  Sender: FDA-Public Use
  Company Number: JP-NAPPMUNDI-GBR-2013-0016148

PATIENT
  Age: 91 Year
  Sex: Female
  Weight: 46 kg

DRUGS (5)
  1. BTDS 5 MG [Suspect]
     Indication: ANALGESIC THERAPY
     Dosage: 5 MCG, Q1H
     Route: 062
     Dates: start: 20120531, end: 20130214
  2. PREDNISOLONE [Concomitant]
     Indication: RHEUMATOID ARTHRITIS
     Dosage: 5 MG, DAILY
     Route: 048
  3. AZULFIDINE [Concomitant]
     Indication: RHEUMATOID ARTHRITIS
     Dosage: 1000 MG, DAILY
     Route: 048
  4. HYPEN                              /00613801/ [Concomitant]
     Indication: OSTEOARTHRITIS
     Dosage: 400 MG, DAILY
     Route: 048
  5. ATELEC [Concomitant]
     Indication: HYPERTENSION
     Dosage: 10 MG, DAILY
     Route: 048

REACTIONS (1)
  - Cardiac failure acute [Recovering/Resolving]
